FAERS Safety Report 5887721-9 (Version None)
Quarter: 2008Q3

REPORT INFORMATION
  Report Type: 
  Country: None (occurrence: None)
  Receive Date: 20080917
  Receipt Date: 20080917
  Transmission Date: 20090109
  Serious: No
  Sender: FDA-Public Use
  Company Number: None

PATIENT
  Sex: Male
  Weight: 94.3482 kg

DRUGS (1)
  1. LISINOPRIL [Suspect]
     Indication: RENAL DISORDER
     Dosage: 10MG QD
     Dates: start: 20080910, end: 20080912

REACTIONS (3)
  - ERYTHEMA [None]
  - FEELING HOT [None]
  - PYREXIA [None]
